FAERS Safety Report 10201975 (Version 1)
Quarter: 2014Q2

REPORT INFORMATION
  Report Type: Spontaneous
  Country: US (occurrence: US)
  Receive Date: 20140528
  Receipt Date: 20140528
  Transmission Date: 20141212
  Serious: No
  Sender: FDA-Public Use
  Company Number: US-BRISTOL-MYERS SQUIBB COMPANY-19800556

PATIENT
  Age: 91 Year
  Sex: Female

DRUGS (3)
  1. ABILIFY TABS 5 MG [Suspect]
     Indication: DEPRESSION
     Dates: start: 20131109
  2. METFORMIN HCL [Suspect]
  3. LEXAPRO [Suspect]
     Indication: DEPRESSION

REACTIONS (1)
  - Blood glucose increased [Recovered/Resolved]
